FAERS Safety Report 9826150 (Version 1)
Quarter: 2014Q1

REPORT INFORMATION
  Report Type: Spontaneous
  Country: US (occurrence: US)
  Receive Date: 20140117
  Receipt Date: 20140117
  Transmission Date: 20141002
  Serious: Yes (Other)
  Sender: FDA-Public Use
  Company Number: US-SA-2014SA006717

PATIENT
  Sex: Female

DRUGS (2)
  1. LANTUS [Suspect]
     Route: 065
  2. HUMALOG [Suspect]
     Route: 065

REACTIONS (3)
  - Carotid artery thrombosis [Unknown]
  - Blood cholesterol increased [Unknown]
  - Blood glucose increased [Unknown]
